FAERS Safety Report 9908863 (Version 3)
Quarter: 2014Q1

REPORT INFORMATION
  Report Type: Spontaneous
  Country: US (occurrence: None)
  Receive Date: 20140212
  Receipt Date: 20140328
  Transmission Date: 20141002
  Serious: Yes (Hospitalization, Other)
  Sender: FDA-Public Use
  Company Number: 2014-US-001128

PATIENT
  Age: 45 Year
  Sex: Female

DRUGS (3)
  1. XYREM [Suspect]
     Indication: INSOMNIA
     Dosage: 0.5 G, BID, ORAL
     Route: 048
     Dates: start: 200409
  2. XYREM [Suspect]
     Indication: FIBROMYALGIA
     Dosage: 0.5 G, BID, ORAL
     Route: 048
     Dates: start: 200409
  3. METHADONE (METHADONE HYDROCHLORIDE) [Concomitant]

REACTIONS (8)
  - Intestinal ischaemia [None]
  - Intestinal resection [None]
  - Malaise [None]
  - Off label use [None]
  - Procedural pain [None]
  - Malaise [None]
  - Somnolence [None]
  - Underdose [None]
